FAERS Safety Report 23323338 (Version 1)
Quarter: 2023Q4

REPORT INFORMATION
  Report Type: Other
  Country: CN (occurrence: None)
  Receive Date: 20231220
  Receipt Date: 20231220
  Transmission Date: 20240110
  Serious: Yes (Other)
  Sender: FDA-Public Use
  Company Number: CN-ROCHE-3476686

PATIENT

DRUGS (5)
  1. ATEZOLIZUMAB [Suspect]
     Active Substance: ATEZOLIZUMAB
     Indication: Hepatocellular carcinoma
     Route: 042
  2. BEVACIZUMAB [Suspect]
     Active Substance: BEVACIZUMAB
     Indication: Hepatocellular carcinoma
     Route: 065
  3. SORAFENIB [Suspect]
     Active Substance: SORAFENIB
     Indication: Hepatocellular carcinoma
     Route: 065
  4. LENVATINIB [Suspect]
     Active Substance: LENVATINIB
     Indication: Hepatocellular carcinoma
     Route: 065
  5. SINTILIMAB [Suspect]
     Active Substance: SINTILIMAB
     Indication: Hepatocellular carcinoma
     Route: 042

REACTIONS (10)
  - Abdominal pain [Unknown]
  - Liver injury [Unknown]
  - Pyrexia [Unknown]
  - Fatigue [Unknown]
  - Gastrointestinal perforation [Unknown]
  - Gastrointestinal haemorrhage [Unknown]
  - Palmar-plantar erythrodysaesthesia syndrome [Unknown]
  - Eye inflammation [Unknown]
  - Hypophysitis [Unknown]
  - Immune-mediated myocarditis [Unknown]
